FAERS Safety Report 9230861 (Version 1)
Quarter: 2013Q2

REPORT INFORMATION
  Report Type: Spontaneous
  Country: MX (occurrence: MX)
  Receive Date: 20130415
  Receipt Date: 20130415
  Transmission Date: 20140414
  Serious: Yes (Other)
  Sender: FDA-Public Use
  Company Number: PHHY2012MX112408

PATIENT
  Age: 73 Year
  Sex: Male

DRUGS (14)
  1. STALEVO [Suspect]
     Indication: PARKINSON^S DISEASE
     Dosage: 6 DF (200/100/25MG) DAILY
     Route: 048
     Dates: start: 201209, end: 20121123
  2. STALEVO [Suspect]
     Dosage: 200/50/12.5MG, DAILY
     Route: 048
     Dates: end: 201301
  3. ASPIRINE [Concomitant]
     Dosage: 1 DF, QD
     Dates: start: 2002
  4. RANITIDINE [Concomitant]
     Indication: GASTRIC DISORDER
     Dosage: 1 DF, QD
     Dates: start: 2010
  5. TEMPRA [Concomitant]
     Dosage: 3 UKN, DAILY
     Dates: start: 201303
  6. ARCOXIA [Concomitant]
     Dosage: 1 UKN, DAILY
     Dates: start: 201303
  7. CEPHALEX//CEFALEXIN MONOHYDRATE [Concomitant]
     Dosage: 3 UKN, DAILY
     Dates: start: 201303
  8. KETOROLAC [Concomitant]
     Dosage: 3 UKN, DAILY
     Dates: start: 201303
  9. BREDELIN [Concomitant]
     Dosage: 1 UKN, DAILY
     Dates: start: 201303
  10. XARELTO [Concomitant]
     Dosage: 1 UKN, DAILY
     Dates: start: 201303
  11. PK MERZ [Concomitant]
     Dosage: 1 UKN, DAILY
     Dates: start: 201201
  12. REMERON [Concomitant]
     Dosage: 1 UKN, DAILY
     Dates: start: 201301
  13. NEUPAX//ALPRAZOLAM [Concomitant]
     Dosage: 1 UKN, DAILY
     Dates: start: 201301
  14. ALUMINIUM SILICATE [Concomitant]
     Dosage: 1 UKN, DAILY
     Dates: start: 201203

REACTIONS (7)
  - Lower limb fracture [Recovering/Resolving]
  - Accident [Unknown]
  - Choking [Not Recovered/Not Resolved]
  - Restlessness [Recovered/Resolved]
  - Anxiety [Recovered/Resolved]
  - Tremor [Unknown]
  - Therapeutic response decreased [Unknown]
